FAERS Safety Report 5207888-5 (Version None)
Quarter: 2007Q1

REPORT INFORMATION
  Report Type: 
  Country: None (occurrence: None)
  Receive Date: 20070112
  Receipt Date: 20070105
  Transmission Date: 20070707
  Serious: Yes (Other)
  Sender: FDA-Public Use
  Company Number: JP-PFIZER INC-2007002664

PATIENT
  Age: 55 Year
  Sex: Female

DRUGS (6)
  1. MEDROL [Suspect]
     Dosage: DAILY DOSE:12MG
     Route: 048
     Dates: start: 20061222, end: 20061228
  2. RINLAXER [Concomitant]
     Route: 048
  3. NEUROTROPIN [Concomitant]
  4. VOLTAREN [Concomitant]
     Route: 054
  5. CYANOCOBALAMIN [Concomitant]
  6. MYONAL [Concomitant]
     Route: 048

REACTIONS (3)
  - ANOREXIA [None]
  - HAEMATOCHEZIA [None]
  - NAUSEA [None]
